FAERS Safety Report 6297370-9 (Version None)
Quarter: 2009Q3

REPORT INFORMATION
  Report Type: 
  Country: None (occurrence: None)
  Receive Date: 20090805
  Receipt Date: 20090727
  Transmission Date: 20100115
  Serious: Yes (Other)
  Sender: FDA-Public Use
  Company Number: US-JNJFOC-20090708738

PATIENT
  Sex: Male
  Weight: 90.72 kg

DRUGS (4)
  1. DITROPAN [Suspect]
     Route: 048
  2. DITROPAN [Suspect]
     Indication: BLADDER DISORDER
     Route: 048
  3. DITROPAN XL [Suspect]
     Indication: BLADDER DISORDER
     Route: 048
  4. ZOLOFT [Concomitant]
     Indication: DEPRESSION
     Route: 048

REACTIONS (2)
  - DRUG INEFFECTIVE [None]
  - WEIGHT DECREASED [None]
